FAERS Safety Report 10978722 (Version 1)
Quarter: 2015Q2

REPORT INFORMATION
  Report Type: Spontaneous
  Country: DE (occurrence: DE)
  Receive Date: 20150402
  Receipt Date: 20150402
  Transmission Date: 20150821
  Serious: Yes (Hospitalization)
  Sender: FDA-Public Use
  Company Number: DE-PFIZER INC-2015111905

PATIENT
  Age: 85 Year
  Sex: Female

DRUGS (1)
  1. UNACID [Suspect]
     Active Substance: AMPICILLIN SODIUM\SULBACTAM SODIUM
     Dosage: 1.5 MG, UNK
     Route: 042
     Dates: start: 20150305, end: 20150307

REACTIONS (2)
  - Flushing [Recovered/Resolved]
  - Administration site oedema [Recovered/Resolved]

NARRATIVE: CASE EVENT DATE: 20150310
